FAERS Safety Report 8102998-7 (Version None)
Quarter: 2012Q1

REPORT INFORMATION
  Report Type: 
  Country: None (occurrence: None)
  Receive Date: 20120127
  Receipt Date: 20120116
  Transmission Date: 20120608
  Serious: Yes (Other)
  Sender: FDA-Public Use
  Company Number: 2012P1003006

PATIENT

DRUGS (1)
  1. HEPARIN [Suspect]
     Indication: NEPHRECTOMY
     Dosage: 10000 IU; X1; IV
     Route: 042

REACTIONS (2)
  - POST PROCEDURAL HAEMORRHAGE [None]
  - OVERDOSE [None]
